FAERS Safety Report 12796397 (Version 1)
Quarter: 2016Q3

REPORT INFORMATION
  Report Type: Spontaneous
  Country: US (occurrence: US)
  Receive Date: 20160929
  Receipt Date: 20160929
  Transmission Date: 20161109
  Serious: No
  Sender: FDA-Public Use
  Company Number: US-INCYTE CORPORATION-2016IN002690

PATIENT
  Age: 78 Year
  Sex: Male

DRUGS (1)
  1. JAKAFI [Suspect]
     Active Substance: RUXOLITINIB
     Indication: MYELOFIBROSIS
     Dosage: 5 MG, BID
     Route: 048
     Dates: start: 20160416

REACTIONS (4)
  - Sleep disorder [Unknown]
  - Peripheral swelling [Unknown]
  - Cholelithiasis [Unknown]
  - Weight increased [Unknown]

NARRATIVE: CASE EVENT DATE: 20160505
